FAERS Safety Report 21202951 (Version 1)
Quarter: 2022Q3

REPORT INFORMATION
  Report Type: Spontaneous
  Country: BR (occurrence: BR)
  Receive Date: 20220811
  Receipt Date: 20220811
  Transmission Date: 20221027
  Serious: Yes (Disabling)
  Sender: FDA-Public Use
  Company Number: BR-TAKEDA-2022TUS054576

PATIENT
  Age: 40 Year

DRUGS (1)
  1. MESALAMINE [Suspect]
     Active Substance: MESALAMINE
     Indication: Colitis
     Dosage: UNK
     Route: 065

REACTIONS (3)
  - Physical disability [Unknown]
  - Therapy interrupted [Unknown]
  - Poor quality product administered [Unknown]
